FAERS Safety Report 10064802 (Version 1)
Quarter: 2014Q2

REPORT INFORMATION
  Report Type: Spontaneous
  Country: US (occurrence: None)
  Receive Date: 20140404
  Receipt Date: 20140404
  Transmission Date: 20141212
  Serious: Yes (Hospitalization)
  Sender: FDA-Public Use
  Company Number: UTC-046412

PATIENT
  Age: 51 Year
  Sex: Male

DRUGS (1)
  1. REMODULIN [Suspect]
     Indication: PULMONARY ARTERIAL HYPERTENSION
     Dosage: 0.033 UG/KG, 1 IN 1 MIN
     Route: 041
     Dates: start: 20130130

REACTIONS (3)
  - Lumbar vertebral fracture [None]
  - Weight increased [None]
  - Dyspnoea [None]
